FAERS Safety Report 8778565 (Version 1)
Quarter: 2012Q4

REPORT INFORMATION
  Report Type: 
  Country: CN (occurrence: CN)
  Receive Date: 20120912
  Receipt Date: 20120912
  Transmission Date: 20130627
  Serious: Yes (Death)
  Sender: FDA-Public Use
  Company Number: CN-BAYER-2012-092645

PATIENT
  Age: 84 Year
  Sex: Male

DRUGS (1)
  1. NEXAVAR [Suspect]
     Indication: RENAL CELL CARCINOMA
     Dosage: 600 mg/d, UNK
     Route: 048
     Dates: start: 20120825, end: 20120831

REACTIONS (2)
  - Vomiting [None]
  - Asphyxia [Fatal]
